FAERS Safety Report 13183596 (Version 2)
Quarter: 2017Q2

REPORT INFORMATION
  Report Type: Report from Study
  Country: US (occurrence: US)
  Receive Date: 20170203
  Receipt Date: 20170509
  Transmission Date: 20170830
  Serious: No
  Sender: FDA-Public Use
  Company Number: US-AMGEN-USASL2017014191

PATIENT
  Age: 54 Year
  Sex: Female

DRUGS (1)
  1. ENBREL [Suspect]
     Active Substance: ETANERCEPT
     Indication: RHEUMATOID ARTHRITIS
     Dosage: 50 MG, QWK
     Route: 065

REACTIONS (7)
  - Head injury [Unknown]
  - Abdominal pain [Unknown]
  - Diarrhoea [Unknown]
  - Fall [Unknown]
  - Hypotension [Unknown]
  - Dehydration [Unknown]
  - Drug dose omission [Unknown]
